FAERS Safety Report 16384384 (Version 1)
Quarter: 2019Q2

REPORT INFORMATION
  Report Type: Spontaneous
  Country: ES (occurrence: ES)
  Receive Date: 20190603
  Receipt Date: 20190603
  Transmission Date: 20190711
  Serious: Yes (Hospitalization)
  Sender: FDA-Public Use
  Company Number: ES-BAUSCH-BL-2019-015686

PATIENT
  Age: 50 Year
  Sex: Female
  Weight: 70 kg

DRUGS (3)
  1. NAPROXENO (2002A) [Interacting]
     Active Substance: NAPROXEN
     Indication: PAIN
     Route: 048
     Dates: start: 20180415, end: 20180430
  2. DEXAMETASONA (722A) [Suspect]
     Active Substance: DEXAMETHASONE
     Indication: BREAST CANCER METASTATIC
     Route: 048
     Dates: start: 20171122
  3. HIBOR (BEMIPARIN SODIUM) [Interacting]
     Active Substance: BEMIPARIN SODIUM
     Indication: PULMONARY EMBOLISM
     Dosage: 10.000 IU ANTI-XA/0.4 ML, 10
     Route: 058
     Dates: start: 20180215, end: 20180430

REACTIONS (1)
  - Gastrointestinal haemorrhage [Recovered/Resolved]

NARRATIVE: CASE EVENT DATE: 20180430
